FAERS Safety Report 4796952-0 (Version None)
Quarter: 2005Q4

REPORT INFORMATION
  Report Type: 
  Country: None (occurrence: None)
  Receive Date: 20051013
  Receipt Date: 20050318
  Transmission Date: 20060501
  Serious: Yes (Other)
  Sender: FDA-Public Use
  Company Number: PHBS2005RU04313

PATIENT
  Age: 41 Year
  Sex: Male

DRUGS (2)
  1. FAMVIR [Suspect]
     Indication: HERPES SIMPLEX
     Dosage: 250 MG, TID
     Route: 048
     Dates: start: 20050101
  2. PANAVIR [Suspect]

REACTIONS (7)
  - ACARODERMATITIS [None]
  - DRUG INEFFECTIVE [None]
  - DRUG INTERACTION [None]
  - RASH [None]
  - RASH VESICULAR [None]
  - TOXIC SKIN ERUPTION [None]
  - URTICARIA [None]
